FAERS Safety Report 8046605-0 (Version None)
Quarter: 2012Q1

REPORT INFORMATION
  Report Type: 
  Country: None (occurrence: None)
  Receive Date: 20120114
  Receipt Date: 20120105
  Transmission Date: 20120608
  Serious: Yes (Other)
  Sender: FDA-Public Use
  Company Number: DE-AMGEN-DEUSP2012001210

PATIENT
  Age: 30 Year
  Sex: Female
  Weight: 36 kg

DRUGS (6)
  1. METHYLPREDNISOLONE [Concomitant]
     Dosage: 2 MG, PER DAY
     Dates: start: 20111208
  2. INDOMETHACIN [Concomitant]
     Indication: JUVENILE ARTHRITIS
     Dosage: 25 MG, 2X/DAY
     Route: 048
     Dates: start: 20000101, end: 20111101
  3. ENBREL [Suspect]
     Indication: JUVENILE ARTHRITIS
     Dosage: 25 MG, 2 XWEEKLY
     Route: 058
     Dates: start: 20000101, end: 20111101
  4. METHYLPREDNISOLONE [Concomitant]
     Indication: JUVENILE ARTHRITIS
     Dosage: 2 MG, DAILY
     Route: 048
     Dates: start: 20000101, end: 20111101
  5. ENBREL [Suspect]
     Dosage: 25 MG, 2 TIMES/WK
     Dates: start: 20111208
  6. INDOMETHACIN [Concomitant]
     Dosage: UNK
     Dates: start: 20111208

REACTIONS (1)
  - ABORTION [None]
